FAERS Safety Report 7654879-0 (Version None)
Quarter: 2011Q3

REPORT INFORMATION
  Report Type: 
  Country: None (occurrence: None)
  Receive Date: 20110803
  Receipt Date: 20110803
  Transmission Date: 20111222
  Serious: Yes (Hospitalization)
  Sender: FDA-Public Use
  Company Number: None

PATIENT
  Sex: Female
  Weight: 54.4 kg

DRUGS (2)
  1. TAXOL [Suspect]
     Dosage: 456 MG
     Dates: end: 20110513
  2. CARBOPLATIN [Suspect]
     Dosage: 1236 MG
     Dates: end: 20110513

REACTIONS (6)
  - DYSPHAGIA [None]
  - WEIGHT DECREASED [None]
  - OESOPHAGEAL STENOSIS [None]
  - OESOPHAGEAL ULCER [None]
  - ASTHENIA [None]
  - ODYNOPHAGIA [None]
